FAERS Safety Report 13256743 (Version 2)
Quarter: 2017Q1

REPORT INFORMATION
  Report Type: Report from Study
  Country: CO (occurrence: CO)
  Receive Date: 20170221
  Receipt Date: 20170314
  Transmission Date: 20170428
  Serious: Yes (Hospitalization)
  Sender: FDA-Public Use
  Company Number: CO-JNJFOC-20170215829

PATIENT
  Age: 54 Year
  Sex: Female
  Weight: 85 kg

DRUGS (2)
  1. RISPERDAL CONSTA [Suspect]
     Active Substance: RISPERIDONE
     Indication: SCHIZOPHRENIA
     Route: 030
     Dates: start: 20170306
  2. RISPERDAL CONSTA [Suspect]
     Active Substance: RISPERIDONE
     Indication: SCHIZOPHRENIA
     Route: 030
     Dates: start: 20090711, end: 20161123

REACTIONS (4)
  - Neglect of personal appearance [Recovering/Resolving]
  - Irritability [Recovering/Resolving]
  - Aggression [Recovering/Resolving]
  - Social avoidant behaviour [Recovering/Resolving]

NARRATIVE: CASE EVENT DATE: 20170129
